FAERS Safety Report 20649475 (Version 1)
Quarter: 2022Q1

REPORT INFORMATION
  Report Type: Spontaneous
  Country: US (occurrence: US)
  Receive Date: 20220329
  Receipt Date: 20220329
  Transmission Date: 20220423
  Serious: Yes (Hospitalization, Other)
  Sender: FDA-Public Use
  Company Number: US-NOVARTISPH-NVSC2022US068485

PATIENT
  Age: 63 Year
  Sex: Female

DRUGS (2)
  1. LETROZOLE [Suspect]
     Active Substance: LETROZOLE
     Indication: Product used for unknown indication
     Dosage: UNK
     Route: 065
     Dates: start: 20200903
  2. IBRANCE [Suspect]
     Active Substance: PALBOCICLIB
     Indication: Invasive breast carcinoma
     Dosage: UNK
     Route: 065
     Dates: start: 20200903

REACTIONS (13)
  - Dyspnoea [Unknown]
  - Hypoxia [Unknown]
  - Metastases to bone [Unknown]
  - COVID-19 [Unknown]
  - Lymphoedema [Unknown]
  - Uterine leiomyoma [Unknown]
  - Bone lesion [Unknown]
  - Pain in extremity [Not Recovered/Not Resolved]
  - Tenderness [Unknown]
  - Nausea [Unknown]
  - Back pain [Unknown]
  - Arthralgia [Unknown]
  - Breast pain [Unknown]

NARRATIVE: CASE EVENT DATE: 20201130
